FAERS Safety Report 5193840-5 (Version None)
Quarter: 2006Q4

REPORT INFORMATION
  Report Type: 
  Country: None (occurrence: None)
  Receive Date: 20061222
  Receipt Date: 20061211
  Transmission Date: 20070319
  Serious: Yes (Hospitalization)
  Sender: FDA-Public Use
  Company Number: 2478

PATIENT

DRUGS (5)
  1. ONTAK [Suspect]
     Indication: MYCOSIS FUNGOIDES
  2. ONTAK [Suspect]
     Indication: PERIPHERAL T-CELL LYMPHOMA UNSPECIFIED
  3. TARGRETIN [Suspect]
     Indication: MYCOSIS FUNGOIDES
  4. TARGRETIN [Suspect]
     Indication: PERIPHERAL T-CELL LYMPHOMA UNSPECIFIED
  5. BACTRIM [Suspect]

REACTIONS (3)
  - PNEUMONIA [None]
  - SKIN EXFOLIATION [None]
  - SKIN NECROSIS [None]
